FAERS Safety Report 9224636 (Version 1)
Quarter: 2013Q1

REPORT INFORMATION
  Report Type: Spontaneous
  Country: US (occurrence: None)
  Receive Date: 20120914
  Receipt Date: 20120914
  Transmission Date: 20140127
  Serious: No
  Sender: FDA-Public Use
  Company Number: JPI-P-020069

PATIENT
  Age: 39 Year
  Sex: Male
  Weight: 90.72 kg

DRUGS (4)
  1. XYREM [Suspect]
     Indication: SLEEP APNOEA SYNDROME
     Route: 048
     Dates: start: 20071024
  2. AMITRIPTYLINE [Concomitant]
  3. DULOXETINE HYDROCHLORIDE [Concomitant]
  4. GABAPENTIN [Concomitant]

REACTIONS (3)
  - Drug abuse [None]
  - Convulsion [None]
  - Abnormal behaviour [None]
